FAERS Safety Report 16190558 (Version 1)
Quarter: 2019Q2

REPORT INFORMATION
  Report Type: Spontaneous
  Country: SE (occurrence: SE)
  Receive Date: 20190412
  Receipt Date: 20190412
  Transmission Date: 20190711
  Serious: Yes (Hospitalization)
  Sender: FDA-Public Use
  Company Number: SE-PFIZER INC-2019150721

PATIENT
  Age: 76 Year
  Sex: Male

DRUGS (10)
  1. OXYNORM [Concomitant]
     Active Substance: OXYCODONE HYDROCHLORIDE
     Dosage: AS NEEDED (MAX 6 CAPSULES DAILY)
     Dates: start: 20150608
  2. PRAVASTATIN SANDOZ [Concomitant]
     Active Substance: PRAVASTATIN
     Dosage: 1 DF, DAILY
  3. WARAN [Interacting]
     Active Substance: WARFARIN SODIUM
     Dosage: ACCORDING TO SEPARATE SCHEDULE
     Dates: start: 20140729
  4. FURIX (FUROSEMIDE) [Concomitant]
     Active Substance: FUROSEMIDE
     Dosage: 60 MG, DAILY
  5. ALVEDON [Concomitant]
     Active Substance: ACETAMINOPHEN
     Dosage: 4 G, DAILY
  6. TROMBYL [Concomitant]
     Active Substance: ASPIRIN
     Dosage: 1 DF, DAILY
     Dates: start: 20160808
  7. OXYCONTIN [Concomitant]
     Active Substance: OXYCODONE HYDROCHLORIDE
     Dosage: 20 MG, DAILY
     Dates: start: 20150608
  8. DIFLUCAN [Suspect]
     Active Substance: FLUCONAZOLE
     Indication: OESOPHAGEAL CANDIDIASIS
     Dosage: 1 DF, DAILY
     Route: 048
     Dates: start: 20190219, end: 20190318
  9. ESOMEPRAZOL ACTAVIS [Concomitant]
     Active Substance: ESOMEPRAZOLE
     Dosage: 1 DF, DAILY
     Dates: start: 20190219
  10. LOSARTAN KRKA [LOSARTAN POTASSIUM] [Concomitant]
     Dosage: 1 DF, DAILY
     Dates: start: 20140721

REACTIONS (6)
  - Skin haemorrhage [Unknown]
  - Anal haemorrhage [Unknown]
  - Epistaxis [Unknown]
  - Drug interaction [Unknown]
  - Haematoma muscle [Unknown]
  - International normalised ratio increased [Unknown]

NARRATIVE: CASE EVENT DATE: 20190318
